FAERS Safety Report 13318179 (Version 1)
Quarter: 2017Q1

REPORT INFORMATION
  Report Type: Spontaneous
  Country: US (occurrence: US)
  Receive Date: 20170309
  Receipt Date: 20170309
  Transmission Date: 20170428
  Serious: Yes (Life-Threatening)
  Sender: FDA-Public Use
  Company Number: None

PATIENT
  Age: 23 Year
  Sex: Female
  Weight: 72 kg

DRUGS (7)
  1. NOVALOG INSULIN [Concomitant]
  2. FERROUS SULFATE. [Concomitant]
     Active Substance: FERROUS SULFATE
  3. CETIRIZINE [Concomitant]
     Active Substance: CETIRIZINE HYDROCHLORIDE
  4. LEVOTHYROXINE. [Concomitant]
     Active Substance: LEVOTHYROXINE
  5. VITAMIN D [Concomitant]
     Active Substance: CHOLECALCIFEROL
  6. RAMIPRIL. [Concomitant]
     Active Substance: RAMIPRIL
  7. TOUJEO [Suspect]
     Active Substance: INSULIN GLARGINE
     Indication: TYPE 1 DIABETES MELLITUS
     Dosage: ?          QUANTITY:56 UNITS;OTHER ROUTE:INJECTION?
     Dates: end: 20170309

REACTIONS (4)
  - Urinary tract infection [None]
  - Hypoglycaemia [None]
  - Anaemia [None]
  - Diabetic ketoacidosis [None]

NARRATIVE: CASE EVENT DATE: 20170206
